FAERS Safety Report 4500765-4 (Version None)
Quarter: 2004Q4

REPORT INFORMATION
  Report Type: 
  Country: None (occurrence: None)
  Receive Date: 20041115
  Receipt Date: 20041029
  Transmission Date: 20050328
  Serious: Yes (Disabling, Other)
  Sender: FDA-Public Use
  Company Number: 200420785GDDC

PATIENT
  Age: 49 Year
  Sex: Female

DRUGS (17)
  1. KETEK [Suspect]
     Indication: SINUS DISORDER
     Route: 048
     Dates: start: 20041019, end: 20041026
  2. KETEK [Suspect]
     Indication: SURGERY
     Route: 048
     Dates: start: 20041019, end: 20041026
  3. MYPRODOL [Concomitant]
     Indication: PAIN
     Dosage: DOSE: 2 EVERY 6 HOURS
     Route: 048
     Dates: start: 20041019, end: 20041026
  4. LOCABIOTAL [Concomitant]
     Dosage: DOSE: UNK
     Route: 055
     Dates: start: 20041019
  5. MISTABRON [Concomitant]
     Dosage: DOSE: UNK
     Route: 055
     Dates: start: 20041018
  6. MIDAZOLAM HCL [Concomitant]
     Dosage: DOSE: UNK
  7. BREVIBLOC [Concomitant]
     Dosage: DOSE: UNK
  8. ESMERON [Concomitant]
     Dosage: DOSE: UNK
     Dates: start: 20041012
  9. NEOSTIGMINE [Concomitant]
     Dosage: DOSE: UNK
     Dates: start: 20041012
  10. RAYZON [Concomitant]
     Dosage: DOSE: UNK
     Dates: start: 20041012
  11. ULTIVA [Concomitant]
     Dosage: DOSE: UNK
     Dates: start: 20041012
  12. PETHIDINE [Concomitant]
     Dosage: DOSE: UNK
     Dates: start: 20041012
  13. KLACID [Concomitant]
     Dosage: DOSE: UNK
  14. MYPRODOL [Concomitant]
     Dosage: DOSE: UNK
  15. MAINTELYT [Concomitant]
     Dosage: DOSE: UNK
  16. PROCHLORPERAZINE [Concomitant]
     Dosage: DOSE: UNK
  17. LARGACTIL [Concomitant]
     Dosage: DOSE: UNK

REACTIONS (5)
  - HEARING IMPAIRED [None]
  - NAUSEA [None]
  - PYREXIA [None]
  - VERTIGO [None]
  - VOMITING [None]
